FAERS Safety Report 9815775 (Version 2)
Quarter: 2014Q1

REPORT INFORMATION
  Report Type: Report from Study
  Country: GB (occurrence: GB)
  Receive Date: 20140114
  Receipt Date: 20140124
  Transmission Date: 20141002
  Serious: Yes (Hospitalization)
  Sender: FDA-Public Use
  Company Number: GB-009507513-1310GBR006947

PATIENT
  Age: 73 Year
  Sex: Female
  Weight: 54 kg

DRUGS (2)
  1. ALENDRONATE SODIUM [Suspect]
     Indication: OSTEOPOROSIS
     Dosage: 70 MG, QW
     Route: 048
     Dates: start: 20121016
  2. MK-0000 (281) [Suspect]
     Indication: OSTEOPOROSIS
     Dosage: UNK

REACTIONS (7)
  - Lower limb fracture [Unknown]
  - Lower limb fracture [Unknown]
  - Tibia fracture [Recovered/Resolved with Sequelae]
  - Lower respiratory tract infection [Recovered/Resolved]
  - Intermittent claudication [Not Recovered/Not Resolved]
  - Chalazion [Not Recovered/Not Resolved]
  - Depression [Not Recovered/Not Resolved]
